FAERS Safety Report 8875652 (Version 2)
Quarter: 2012Q4

REPORT INFORMATION
  Report Type: 
  Country: US (occurrence: US)
  Receive Date: 20121030
  Receipt Date: 20121115
  Transmission Date: 20130627
  Serious: Yes (Death, Other)
  Sender: FDA-Public Use
  Company Number: US-BAXTER-2012BAX021665

PATIENT
  Age: 85 Year
  Sex: Female

DRUGS (2)
  1. DIANEAL LOW CALCIUM [Suspect]
     Indication: CONTINUOUS AMBULATORY PERITONEAL DIALYSIS
     Route: 033
     Dates: end: 20121030
  2. DIANEAL LOW CALCIUM (ULTRABAG) [Suspect]
     Indication: CONTINUOUS AMBULATORY PERITONEAL DIALYSIS
     Route: 033
     Dates: end: 20121030

REACTIONS (5)
  - Medical device complication [Fatal]
  - Intestinal perforation [Fatal]
  - Malaise [Unknown]
  - Constipation [Unknown]
  - Peritonitis bacterial [Unknown]
